FAERS Safety Report 8262088-X (Version None)
Quarter: 2012Q2

REPORT INFORMATION
  Report Type: 
  Country: None (occurrence: None)
  Receive Date: 20120405
  Receipt Date: 20120329
  Transmission Date: 20120825
  Serious: Yes (Other)
  Sender: FDA-Public Use
  Company Number: PHEH2012US001227

PATIENT
  Age: 79 Year
  Sex: Female

DRUGS (10)
  1. OMEPRAZOLE [Concomitant]
     Indication: GASTRIC DISORDER
     Dosage: UNK UKN, UNK
  2. ASPIRIN [Concomitant]
     Dosage: 325 MG, DAILY
  3. NITROGLYCERIN [Concomitant]
     Dosage: 6.5 UKN, UNK
  4. CALCIUM CARBONATE [Concomitant]
     Dosage: UNK UKN, UNK
  5. DIOVAN [Suspect]
     Dosage: 320 MG, QD
     Dates: start: 20070101, end: 20110131
  6. VITAMIN D [Concomitant]
     Dosage: UNK UKN, UNK
  7. VITAMIN B NOS [Concomitant]
     Dosage: UNK UKN, UNK
  8. LABETALOL HCL [Concomitant]
     Dosage: 400 MG, 2 PER DAY
  9. MAGNESIUM CITRATE [Concomitant]
     Dosage: UNK UKN, UNK
  10. SYNTHROID [Concomitant]
     Dosage: 112 UKN, DAILY

REACTIONS (7)
  - MEMORY IMPAIRMENT [None]
  - PAIN IN EXTREMITY [None]
  - MYALGIA [None]
  - TRANSIENT ISCHAEMIC ATTACK [None]
  - ROAD TRAFFIC ACCIDENT [None]
  - BONE PAIN [None]
  - MUSCLE SPASMS [None]
